FAERS Safety Report 8520185 (Version 5)
Quarter: 2012Q4

REPORT INFORMATION
  Report Type: 
  Country: US (occurrence: US)
  Receive Date: 20120418
  Receipt Date: 20121121
  Transmission Date: 20130627
  Serious: Yes (Hospitalization)
  Sender: FDA-Public Use
  Company Number: US-PFIZER INC-2012091206

PATIENT
  Sex: Female

DRUGS (7)
  1. GLUCOTROL XL [Suspect]
     Dosage: Unk
  2. GLUCOTROL XL [Suspect]
     Dosage: UNK
  3. LIPITOR [Suspect]
     Dosage: Unk
  4. LIPITOR [Suspect]
     Dosage: UNK
  5. NORVASC [Suspect]
     Dosage: Unk
  6. NORVASC [Suspect]
     Dosage: UNK
  7. PREMARIN [Suspect]
     Dosage: Unk

REACTIONS (2)
  - Malaise [Unknown]
  - Circumstance or information capable of leading to medication error [Unknown]
